FAERS Safety Report 15598597 (Version 3)
Quarter: 2019Q3

REPORT INFORMATION
  Report Type: Spontaneous
  Country: JP (occurrence: JP)
  Receive Date: 20181108
  Receipt Date: 20190717
  Transmission Date: 20191004
  Serious: Yes (Other)
  Sender: FDA-Public Use
  Company Number: JP-BRISTOL-MYERS SQUIBB COMPANY-BMS-2018-104307

PATIENT
  Age: 72 Year
  Sex: Male

DRUGS (1)
  1. IPILIMUMAB [Suspect]
     Active Substance: IPILIMUMAB
     Indication: MALIGNANT MELANOMA
     Dosage: UNK
     Route: 065

REACTIONS (5)
  - Gait disturbance [Unknown]
  - Malignant neoplasm progression [Unknown]
  - Incontinence [Unknown]
  - Encephalopathy [Unknown]
  - Pyrexia [Unknown]
